FAERS Safety Report 17551517 (Version 5)
Quarter: 2020Q2

REPORT INFORMATION
  Report Type: Report from Study
  Country: US (occurrence: US)
  Receive Date: 20200317
  Receipt Date: 20200421
  Transmission Date: 20200713
  Serious: Yes (Other)
  Sender: FDA-Public Use
  Company Number: NVSC2020US069492

PATIENT
  Age: 77 Year
  Sex: Male

DRUGS (1)
  1. BEOVU [Suspect]
     Active Substance: BROLUCIZUMAB-DBLL
     Indication: NEOVASCULAR AGE-RELATED MACULAR DEGENERATION
     Dosage: 6 MG, ONCE/SINGLE
     Route: 047
     Dates: start: 20200128

REACTIONS (14)
  - Injection site haemorrhage [Unknown]
  - Vasodilatation [Recovered/Resolved]
  - Vision blurred [Unknown]
  - Cataract [Unknown]
  - Feeling abnormal [Unknown]
  - Visual impairment [Recovered/Resolved]
  - Injection site discolouration [Unknown]
  - Delayed dark adaptation [Unknown]
  - Vitreous floaters [Unknown]
  - Inflammation [Unknown]
  - Throat cancer [Unknown]
  - Wrist fracture [Unknown]
  - Diabetes mellitus [Unknown]
  - Extraocular muscle paresis [Unknown]

NARRATIVE: CASE EVENT DATE: 20200128
